FAERS Safety Report 10063551 (Version 3)
Quarter: 2014Q2

REPORT INFORMATION
  Report Type: Report from Study
  Country: CA (occurrence: CA)
  Receive Date: 20140407
  Receipt Date: 20140509
  Transmission Date: 20141212
  Serious: Yes (Other)
  Sender: FDA-Public Use
  Company Number: CA-ABBVIE-14P-028-1221862-00

PATIENT
  Age: 31 Year
  Sex: Female

DRUGS (1)
  1. HUMIRA [Suspect]
     Indication: CROHN^S DISEASE
     Route: 058
     Dates: start: 20110127

REACTIONS (4)
  - Tooth disorder [Recovered/Resolved]
  - Toothache [Recovering/Resolving]
  - Infection [Recovering/Resolving]
  - Dental caries [Not Recovered/Not Resolved]
